FAERS Safety Report 8561266-X (Version None)
Quarter: 2012Q3

REPORT INFORMATION
  Report Type: 
  Country: None (occurrence: None)
  Receive Date: 20120802
  Receipt Date: 20120723
  Transmission Date: 20120928
  Serious: No
  Sender: FDA-Public Use
  Company Number: US-B.I. PHARMACEUTICALS,INC./RIDGEFIELD-2012-BP-16470BP

PATIENT
  Sex: Male

DRUGS (3)
  1. CIPROFLOXACIN HCL [Suspect]
     Indication: PROSTATE INFECTION
     Dates: start: 20120701, end: 20120701
  2. FLOMAX [Suspect]
     Indication: BENIGN PROSTATIC HYPERPLASIA
     Dosage: 0.4 MG
     Route: 048
     Dates: start: 20120701, end: 20120701
  3. TRADJENTA [Suspect]
     Indication: DIABETES MELLITUS
     Dosage: 5 MG
     Route: 048
     Dates: start: 20120701, end: 20120701

REACTIONS (1)
  - PSYCHOTIC DISORDER [None]
